FAERS Safety Report 6042346-X (Version None)
Quarter: 2009Q1

REPORT INFORMATION
  Report Type: 
  Country: None (occurrence: None)
  Receive Date: 20090116
  Receipt Date: 20090106
  Transmission Date: 20090719
  Serious: Yes (Other)
  Sender: FDA-Public Use
  Company Number: AU-PFIZER INC-2009152998

PATIENT

DRUGS (4)
  1. NEURONTIN [Suspect]
     Indication: EPILEPSY
     Dosage: UNK
     Dates: start: 20020101
  2. RIVOTRIL [Concomitant]
  3. DILANTIN [Concomitant]
  4. TEGRETOL [Concomitant]

REACTIONS (1)
  - PARALYSIS [None]
